FAERS Safety Report 14908114 (Version 1)
Quarter: 2018Q2

REPORT INFORMATION
  Report Type: Spontaneous
  Country: US (occurrence: US)
  Receive Date: 20180430
  Receipt Date: 20180430
  Transmission Date: 20180711
  Serious: Yes (Hospitalization)
  Sender: FDA-Public Use
  Company Number: None

PATIENT
  Age: 50 Year
  Sex: Male

DRUGS (3)
  1. MULTIVITE [Concomitant]
     Active Substance: VITAMINS
  2. C [Concomitant]
  3. STELARA [Suspect]
     Active Substance: USTEKINUMAB
     Indication: PSORIASIS
     Dosage: ?          OTHER FREQUENCY:Q12WKS;?
     Route: 058
     Dates: start: 20151231

REACTIONS (2)
  - Treatment noncompliance [None]
  - Condition aggravated [None]

NARRATIVE: CASE EVENT DATE: 20180416
